FAERS Safety Report 23658668 (Version 2)
Quarter: 2024Q1

REPORT INFORMATION
  Report Type: Spontaneous
  Country: PL (occurrence: PL)
  Receive Date: 20240321
  Receipt Date: 20240329
  Transmission Date: 20240409
  Serious: Yes (Other)
  Sender: FDA-Public Use
  Company Number: PL-AstraZeneca-CH-00590818A

PATIENT
  Age: 4 Year
  Sex: Male

DRUGS (3)
  1. SOLIRIS [Suspect]
     Active Substance: ECULIZUMAB
     Indication: Atypical haemolytic uraemic syndrome
     Dosage: 600 MILLIGRAM
     Route: 065
     Dates: start: 20240216
  2. SOLIRIS [Suspect]
     Active Substance: ECULIZUMAB
     Dosage: 300 MILLIGRAM
     Route: 065
     Dates: start: 20240224
  3. SOLIRIS [Suspect]
     Active Substance: ECULIZUMAB
     Dosage: 300 MILLIGRAM
     Route: 042
     Dates: start: 20240308

REACTIONS (23)
  - Respiratory failure [Recovered/Resolved]
  - Renal impairment [Recovering/Resolving]
  - Sepsis [Recovering/Resolving]
  - Aspiration [Unknown]
  - Blood pressure increased [Recovered/Resolved]
  - Miosis [Unknown]
  - Paranasal sinus inflammation [Unknown]
  - Staphylococcal infection [Unknown]
  - Cholelithiasis [Unknown]
  - Scrotal swelling [Unknown]
  - Somnolence [Unknown]
  - Heart rate decreased [Recovered/Resolved]
  - Device malfunction [Unknown]
  - Cardiac murmur [Unknown]
  - Rash pruritic [Unknown]
  - Rash erythematous [Unknown]
  - Blister [Unknown]
  - Pyrexia [Not Recovered/Not Resolved]
  - Nausea [Unknown]
  - Asthenia [Unknown]
  - Vomiting [Unknown]
  - Fungal infection [Unknown]
  - Petechiae [Unknown]
